FAERS Safety Report 24737171 (Version 1)
Quarter: 2024Q4

REPORT INFORMATION
  Report Type: Spontaneous
  Country: US (occurrence: US)
  Receive Date: 20241216
  Receipt Date: 20241216
  Transmission Date: 20250115
  Serious: No
  Sender: RICONPHARMA LLC
  Company Number: US-RICONPHARMA, LLC-2024RIC000003

PATIENT

DRUGS (2)
  1. ISOSORBIDE MONONITRATE [Suspect]
     Active Substance: ISOSORBIDE MONONITRATE
     Indication: Angina pectoris
     Dosage: 30 MILLIGRAM, TID
     Route: 065
  2. ISOSORBIDE MONONITRATE [Suspect]
     Active Substance: ISOSORBIDE MONONITRATE
     Dosage: 120 MILLIGRAM
     Route: 065

REACTIONS (5)
  - Blood pressure decreased [Unknown]
  - Dizziness [Unknown]
  - Loss of consciousness [Unknown]
  - Fatigue [Unknown]
  - Drug ineffective [Unknown]
